FAERS Safety Report 15092921 (Version 1)
Quarter: 2018Q2

REPORT INFORMATION
  Report Type: Spontaneous
  Country: US (occurrence: US)
  Receive Date: 20180629
  Receipt Date: 20180629
  Transmission Date: 20180711
  Serious: Yes (Other)
  Sender: FDA-Public Use
  Company Number: US-TEVA-2018-US-915626

PATIENT
  Age: 50 Year
  Sex: Male

DRUGS (2)
  1. CLONAZEPAM. [Suspect]
     Active Substance: CLONAZEPAM
     Indication: PANIC DISORDER
     Route: 060
     Dates: start: 1983
  2. CLONAZEPAM. [Suspect]
     Active Substance: CLONAZEPAM
     Indication: COMPLEX REGIONAL PAIN SYNDROME

REACTIONS (10)
  - Withdrawal syndrome [Unknown]
  - Suicidal ideation [Unknown]
  - Drug screen false positive [Unknown]
  - Asthenia [Unknown]
  - Panic reaction [Unknown]
  - Wrong technique in product usage process [Unknown]
  - Feeling abnormal [Unknown]
  - Product use in unapproved indication [Unknown]
  - Drug diversion [Unknown]
  - Bedridden [Unknown]
